FAERS Safety Report 11735312 (Version 2)
Quarter: 2015Q4

REPORT INFORMATION
  Report Type: Spontaneous
  Country: JP (occurrence: JP)
  Receive Date: 20151113
  Receipt Date: 20151202
  Transmission Date: 20160304
  Serious: Yes (Hospitalization)
  Sender: FDA-Public Use
  Company Number: JP-ELI_LILLY_AND_COMPANY-JP201511001691

PATIENT
  Age: 69 Year
  Sex: Male

DRUGS (8)
  1. CYMBALTA [Suspect]
     Active Substance: DULOXETINE HYDROCHLORIDE
     Dosage: 40 MG, QD
     Route: 048
     Dates: start: 20150715
  2. TAKEPRON [Concomitant]
     Active Substance: LANSOPRAZOLE
     Indication: DIABETES MELLITUS
     Dosage: UNK
     Dates: start: 2005
  3. CYMBALTA [Suspect]
     Active Substance: DULOXETINE HYDROCHLORIDE
     Indication: DIABETIC NEUROPATHY
     Dosage: 20 MG, QD
     Route: 048
     Dates: start: 20150706, end: 20150714
  4. MUCOSTA [Concomitant]
     Active Substance: REBAMIPIDE
     Route: 048
  5. LANTUS [Concomitant]
     Active Substance: INSULIN GLARGINE
     Indication: DIABETES MELLITUS
     Dosage: UNK
     Dates: start: 2005
  6. SEIBULE [Concomitant]
     Active Substance: MIGLITOL
     Indication: DIABETES MELLITUS
     Dosage: UNK
     Dates: start: 2005
  7. EQUA [Concomitant]
     Active Substance: VILDAGLIPTIN
     Indication: DIABETES MELLITUS
     Dosage: UNK
     Route: 048
     Dates: start: 2005
  8. MICARDIS [Concomitant]
     Active Substance: TELMISARTAN
     Indication: DIABETES MELLITUS
     Dosage: UNK
     Dates: start: 2005

REACTIONS (5)
  - Amnesia [Unknown]
  - Depressed level of consciousness [Recovered/Resolved]
  - Road traffic accident [Recovered/Resolved]
  - Fracture [Unknown]
  - Hypoglycaemia [Unknown]
